FAERS Safety Report 4488624-7 (Version None)
Quarter: 2004Q4

REPORT INFORMATION
  Report Type: 
  Country: None (occurrence: None)
  Receive Date: 20041026
  Receipt Date: 20041012
  Transmission Date: 20050328
  Serious: Yes (Hospitalization)
  Sender: FDA-Public Use
  Company Number: USA041080801

PATIENT
  Age: 65 Year
  Sex: Male

DRUGS (2)
  1. HUMULIN 70/30 [Suspect]
     Indication: DIABETES MELLITUS
     Dosage: 30 U/2 DAY
  2. GLUCOPHAGE [Concomitant]

REACTIONS (2)
  - ARTHRALGIA [None]
  - INFECTION [None]
